FAERS Safety Report 9069090 (Version 1)
Quarter: 2013Q1

REPORT INFORMATION
  Report Type: Spontaneous
  Country: US (occurrence: None)
  Receive Date: 20130213
  Receipt Date: 20130213
  Transmission Date: 20140127
  Serious: Yes (Death)
  Sender: FDA-Public Use
  Company Number: None

PATIENT
  Age: 58 Year
  Sex: Male

DRUGS (2)
  1. KALETRA [Suspect]
     Dosage: 2 TABS BID ORAL
     Route: 048
     Dates: start: 20120216
  2. TRUVADA [Suspect]
     Dosage: 1 TAB DAILY ORAL
     Route: 048
     Dates: start: 20120216

REACTIONS (1)
  - Death [None]
